FAERS Safety Report 22863442 (Version 8)
Quarter: 2024Q1

REPORT INFORMATION
  Report Type: Report from Study
  Country: US (occurrence: US)
  Receive Date: 20230825
  Receipt Date: 20240329
  Transmission Date: 20240410
  Serious: Yes (Other)
  Sender: FDA-Public Use
  Company Number: US-JAZZ PHARMACEUTICALS-2023-US-017842

PATIENT
  Sex: Male

DRUGS (4)
  1. XYWAV [Suspect]
     Active Substance: CALCIUM OXYBATE\MAGNESIUM OXYBATE\POTASSIUM OXYBATE\SODIUM OXYBATE
     Indication: Narcolepsy
     Dosage: 4 GRAM, BID
     Route: 048
     Dates: start: 20220404
  2. XYWAV [Suspect]
     Active Substance: CALCIUM OXYBATE\MAGNESIUM OXYBATE\POTASSIUM OXYBATE\SODIUM OXYBATE
     Indication: Somnolence
  3. LISDEXAMFETAMINE [Concomitant]
     Active Substance: LISDEXAMFETAMINE
     Indication: Product used for unknown indication
  4. STELARA [Concomitant]
     Active Substance: USTEKINUMAB
     Indication: Product used for unknown indication
     Dosage: UNK
     Dates: start: 20230601

REACTIONS (6)
  - Colitis ulcerative [Recovering/Resolving]
  - Nasal septal operation [Unknown]
  - Frequent bowel movements [Not Recovered/Not Resolved]
  - Flatulence [Not Recovered/Not Resolved]
  - Defaecation urgency [Not Recovered/Not Resolved]
  - Product storage error [Unknown]
